FAERS Safety Report 18170610 (Version 1)
Quarter: 2020Q3

REPORT INFORMATION
  Report Type: Report from Study
  Country: EG (occurrence: EG)
  Receive Date: 20200819
  Receipt Date: 20200819
  Transmission Date: 20201103
  Serious: Yes (Death)
  Sender: FDA-Public Use
  Company Number: NVSC2020EG228642

PATIENT
  Age: 72 Year
  Sex: Male

DRUGS (1)
  1. ENTRESTO [Suspect]
     Active Substance: SACUBITRIL\VALSARTAN
     Indication: CARDIAC FAILURE
     Dosage: 50 MG, BID (50 MG1 TABLET TWICE A DAY)
     Route: 065
     Dates: start: 201808

REACTIONS (2)
  - Fatigue [Unknown]
  - Cerebral thrombosis [Fatal]

NARRATIVE: CASE EVENT DATE: 20200714
